FAERS Safety Report 25599416 (Version 2)
Quarter: 2025Q4

REPORT INFORMATION
  Report Type: Report from Study
  Country: CA (occurrence: CA)
  Receive Date: 20250724
  Receipt Date: 20251031
  Transmission Date: 20260119
  Serious: Yes (Disabling, Other)
  Sender: NOVO NORDISK
  Company Number: CA-NOVOPROD-1481937

PATIENT
  Age: 54 Year
  Sex: Female
  Weight: 68 kg

DRUGS (1)
  1. OZEMPIC [Suspect]
     Active Substance: SEMAGLUTIDE
     Indication: Sleep-related eating disorder
     Dosage: 1 MG, QW
     Route: 058
     Dates: start: 20240801, end: 20250102

REACTIONS (7)
  - Nausea [Not Recovered/Not Resolved]
  - Asthenia [Not Recovered/Not Resolved]
  - Fatigue [Not Recovered/Not Resolved]
  - Dizziness [Not Recovered/Not Resolved]
  - Abdominal distension [Not Recovered/Not Resolved]
  - Constipation [Not Recovered/Not Resolved]
  - Off label use [Recovered/Resolved]

NARRATIVE: CASE EVENT DATE: 20240801
